FAERS Safety Report 7805905-7 (Version None)
Quarter: 2011Q4

REPORT INFORMATION
  Report Type: 
  Country: None (occurrence: None)
  Receive Date: 20111011
  Receipt Date: 20100215
  Transmission Date: 20120403
  Serious: No
  Sender: FDA-Public Use
  Company Number: 2010BI005324

PATIENT
  Sex: Female

DRUGS (2)
  1. TYSABRI [Suspect]
     Indication: MULTIPLE SCLEROSIS
     Route: 042
     Dates: start: 20080626, end: 20100122
  2. TYSABRI [Suspect]
     Route: 042
     Dates: start: 20110922

REACTIONS (5)
  - DRUG INEFFECTIVE [None]
  - MULTIPLE SCLEROSIS [None]
  - BLINDNESS UNILATERAL [None]
  - MULTIPLE SCLEROSIS RELAPSE [None]
  - VISUAL ACUITY REDUCED [None]
